FAERS Safety Report 10349597 (Version 1)
Quarter: 2014Q3

REPORT INFORMATION
  Report Type: Spontaneous
  Country: US (occurrence: None)
  Receive Date: 20140728
  Receipt Date: 20140728
  Transmission Date: 20150326
  Serious: Yes (Life-Threatening, Disabling)
  Sender: FDA-Public Use
  Company Number: None

PATIENT
  Sex: Female

DRUGS (1)
  1. RISPERDAL [Suspect]
     Active Substance: RISPERIDONE

REACTIONS (5)
  - Weight increased [None]
  - Lactation puerperal increased [None]
  - Emotional disorder [None]
  - Breast disorder [None]
  - Hair growth abnormal [None]
